FAERS Safety Report 6588303-6 (Version None)
Quarter: 2010Q1

REPORT INFORMATION
  Report Type: 
  Country: None (occurrence: None)
  Receive Date: 20100202
  Receipt Date: 20090930
  Transmission Date: 20100710
  Serious: No
  Sender: FDA-Public Use
  Company Number: 2010-00640

PATIENT
  Age: 27 Year
  Sex: Male
  Weight: 81.6475 kg

DRUGS (2)
  1. COLD REMEDY NASAL GEL [Suspect]
     Dosage: Q 3-4 HRS - 1 YEAR; 1 YEAR AGO-RECENT
  2. COLD REMEDY NASAL GEL [Suspect]
     Dosage: Q 3-4 HRS -1 YEAR; 1 YEAR AGO-RECENT

REACTIONS (1)
  - ANOSMIA [None]
